FAERS Safety Report 23370084 (Version 2)
Quarter: 2025Q1

REPORT INFORMATION
  Report Type: Report from Study
  Country: US (occurrence: US)
  Receive Date: 20240105
  Receipt Date: 20250120
  Transmission Date: 20250408
  Serious: No
  Sender: VIIV
  Company Number: US-VIIV HEALTHCARE LIMITED-US2023AMR178838

PATIENT
  Sex: Male

DRUGS (5)
  1. CABOTEGRAVIR [Suspect]
     Active Substance: CABOTEGRAVIR
     Indication: HIV infection
     Route: 030
  2. CABOTEGRAVIR [Suspect]
     Active Substance: CABOTEGRAVIR
     Indication: Illness
  3. CABOTEGRAVIR [Suspect]
     Active Substance: CABOTEGRAVIR
  4. CABOTEGRAVIR [Suspect]
     Active Substance: CABOTEGRAVIR
     Indication: HIV infection
     Dosage: 600 MG, Q2M, 600 MG /3 ML SDV/INJ KIT
     Route: 030
  5. CABOTEGRAVIR [Suspect]
     Active Substance: CABOTEGRAVIR
     Indication: Illness

REACTIONS (7)
  - Injection site erythema [Unknown]
  - Injection site swelling [Unknown]
  - Injection site warmth [Unknown]
  - Skin irritation [Unknown]
  - Nasopharyngitis [Not Recovered/Not Resolved]
  - Influenza like illness [Not Recovered/Not Resolved]
  - Product use in unapproved indication [Unknown]
